FAERS Safety Report 9242701 (Version 1)
Quarter: 2013Q2

REPORT INFORMATION
  Report Type: Spontaneous
  Country: US (occurrence: US)
  Receive Date: 20130419
  Receipt Date: 20130419
  Transmission Date: 20140414
  Serious: Yes (Other)
  Sender: FDA-Public Use
  Company Number: US-PFIZER INC-2013120657

PATIENT
  Age: 58 Year
  Sex: Female

DRUGS (7)
  1. XELJANZ [Suspect]
     Dosage: 5 MG, 2X/DAY
     Route: 048
  2. ATIVAN [Concomitant]
     Dosage: 0.5 MG, UNK
  3. AMBIEN [Concomitant]
     Dosage: 5 MG, UNK
  4. TYLENOL W/CODEINE NO. 3 [Concomitant]
     Dosage: UNK
  5. VOLTAREN [Concomitant]
     Dosage: 1%, UNK
  6. PREDNISONE [Concomitant]
     Dosage: 5 MG, UNK
  7. FLEXERIL [Concomitant]
     Dosage: 5 MG, UNK

REACTIONS (2)
  - Lower respiratory tract infection [Recovering/Resolving]
  - Skin exfoliation [Recovering/Resolving]
